FAERS Safety Report 4650134-1 (Version None)
Quarter: 2005Q2

REPORT INFORMATION
  Report Type: 
  Country: None (occurrence: None)
  Receive Date: 20050502
  Receipt Date: 20050407
  Transmission Date: 20051028
  Serious: Yes (Death)
  Sender: FDA-Public Use
  Company Number: US-BRISTOL-MYERS SQUIBB COMPANY-12926317

PATIENT
  Age: 55 Year
  Sex: Female
  Weight: 77 kg

DRUGS (4)
  1. ABILIFY [Suspect]
     Dates: start: 20031219
  2. ZOLOFT [Concomitant]
     Dates: start: 20040601
  3. KLONOPIN [Concomitant]
  4. SONATA [Concomitant]
     Indication: INSOMNIA

REACTIONS (2)
  - BRONCHOPNEUMONIA [None]
  - RESPIRATORY FAILURE [None]
